FAERS Safety Report 6108784-1 (Version None)
Quarter: 2009Q1

REPORT INFORMATION
  Report Type: 
  Country: None (occurrence: None)
  Receive Date: 20090310
  Receipt Date: 20090303
  Transmission Date: 20090719
  Serious: Yes (Other)
  Sender: FDA-Public Use
  Company Number: US-BAYER-200910913NA

PATIENT
  Age: 20 Year
  Sex: Female
  Weight: 66 kg

DRUGS (1)
  1. MIRENA [Suspect]
     Indication: CONTRACEPTION
     Route: 015
     Dates: start: 20081223, end: 20081231

REACTIONS (5)
  - ABDOMINAL PAIN LOWER [None]
  - BURNING SENSATION [None]
  - COMPLICATION OF DEVICE INSERTION [None]
  - UTERINE RUPTURE [None]
  - VAGINAL HAEMORRHAGE [None]
